FAERS Safety Report 8296484-1 (Version None)
Quarter: 2012Q2

REPORT INFORMATION
  Report Type: 
  Country: None (occurrence: None)
  Receive Date: 20120418
  Receipt Date: 20120404
  Transmission Date: 20120825
  Serious: Yes (Other)
  Sender: FDA-Public Use
  Company Number: JP-PFIZER INC-2012085477

PATIENT
  Age: 72 Year
  Sex: Male

DRUGS (4)
  1. VITAMIN B12 [Concomitant]
  2. CELEBREX [Suspect]
     Dosage: 200 MG DAILY
     Route: 048
  3. OPALMON [Concomitant]
  4. PENTASA [Concomitant]

REACTIONS (1)
  - INTESTINAL HAEMORRHAGE [None]
